FAERS Safety Report 5129903-X (Version None)
Quarter: 2006Q4

REPORT INFORMATION
  Report Type: 
  Country: None (occurrence: None)
  Receive Date: 20061013
  Receipt Date: 20061002
  Transmission Date: 20070319
  Serious: Yes (Other)
  Sender: FDA-Public Use
  Company Number: CH-2006-028905

PATIENT
  Sex: Female

DRUGS (1)
  1. MAGNEVIST [Suspect]
     Dosage: 1 DOSE, INTRAVENOUS
     Route: 042
     Dates: start: 20060901, end: 20060901

REACTIONS (4)
  - CIRCULATORY COLLAPSE [None]
  - HEADACHE [None]
  - MALAISE [None]
  - VOMITING [None]
